FAERS Safety Report 15810823 (Version 3)
Quarter: 2019Q1

REPORT INFORMATION
  Report Type: Report from Study
  Country: US (occurrence: US)
  Receive Date: 20190111
  Receipt Date: 20190131
  Transmission Date: 20190417
  Serious: Yes (Other)
  Sender: FDA-Public Use
  Company Number: US-ROCHE-2242591

PATIENT
  Age: 73 Year
  Sex: Female
  Weight: 72.64 kg

DRUGS (15)
  1. NISTATIN [Concomitant]
     Active Substance: NYSTATIN
     Dosage: ONGOING: UNKNOWN
     Route: 048
  2. OXYBUTIN [Concomitant]
     Active Substance: OXYBUTYNIN
     Dosage: ONGOING: UNKNOWN
     Route: 065
  3. LIDOCAINE. [Concomitant]
     Active Substance: LIDOCAINE
     Dosage: ONGOING: UNKNOWN
     Route: 065
  4. LOSARTAN. [Concomitant]
     Active Substance: LOSARTAN
     Dosage: ONGOING: UNKNOWN
     Route: 065
  5. CYMBALTA [Concomitant]
     Active Substance: DULOXETINE HYDROCHLORIDE
     Dosage: ONGOING: UNKNOWN
     Route: 065
  6. NISTATIN [Concomitant]
     Active Substance: NYSTATIN
     Dosage: ONGOING: UNKNOWN
     Route: 065
  7. XANAX [Concomitant]
     Active Substance: ALPRAZOLAM
     Dosage: ONGOING: YES
     Route: 065
  8. PREVACID [Concomitant]
     Active Substance: LANSOPRAZOLE
     Dosage: ONGOING: UNKNOWN
     Route: 065
  9. OCREVUS [Suspect]
     Active Substance: OCRELIZUMAB
     Indication: RELAPSING-REMITTING MULTIPLE SCLEROSIS
     Dosage: ONGOING: YES
     Route: 065
     Dates: start: 20181217
  10. NITROGLYCERIN. [Concomitant]
     Active Substance: NITROGLYCERIN
     Dosage: ONGOING: UNKNOWN
     Route: 065
  11. IMITREX [Concomitant]
     Active Substance: SUMATRIPTAN SUCCINATE
     Dosage: ONGOING: UNKNOWN
     Route: 065
  12. ASPIRIN. [Concomitant]
     Active Substance: ASPIRIN
  13. CLONIDINE. [Concomitant]
     Active Substance: CLONIDINE
     Indication: HYPERTENSION
     Dosage: ONGOING: YES
     Route: 065
  14. SIMVASTATIN. [Concomitant]
     Active Substance: SIMVASTATIN
     Dosage: ONGOING: UNKNOWN
     Route: 065
  15. LYRICA [Concomitant]
     Active Substance: PREGABALIN
     Dosage: ONGOING: UNKNOWN
     Route: 065

REACTIONS (4)
  - Ocular hyperaemia [Unknown]
  - Influenza [Not Recovered/Not Resolved]
  - Eye swelling [Unknown]
  - Conjunctivitis [Unknown]

NARRATIVE: CASE EVENT DATE: 20181227
